FAERS Safety Report 8230798-6 (Version None)
Quarter: 2012Q1

REPORT INFORMATION
  Report Type: 
  Country: None (occurrence: None)
  Receive Date: 20120323
  Receipt Date: 20120321
  Transmission Date: 20120608
  Serious: Yes (Hospitalization, Disabling, Other)
  Sender: FDA-Public Use
  Company Number: US-PFIZER INC-2011296126

PATIENT
  Sex: Male

DRUGS (9)
  1. PROVIGIL [Concomitant]
     Indication: INSOMNIA
     Dosage: UNK
     Dates: start: 20070101, end: 20100101
  2. GABAPENTIN [Concomitant]
     Indication: ANALGESIC THERAPY
     Dosage: UNK
     Dates: start: 20080101
  3. WELLBUTRIN [Concomitant]
     Indication: DEPRESSION
     Dosage: UNK
     Dates: start: 19970101
  4. DRYSOL [Concomitant]
     Indication: HYPOTHYROIDISM
     Dosage: UNK
     Dates: start: 19970101
  5. BUTALBITAL AND CAFFEINE AND PARACETAMOL [Concomitant]
     Indication: MIGRAINE
     Dosage: UNK
     Dates: start: 19970101
  6. VICODIN [Concomitant]
     Indication: MIGRAINE
     Dosage: UNK
     Dates: start: 19970101, end: 20100101
  7. ANDROGEL [Concomitant]
     Indication: HYPOGONADISM
     Dosage: UNK
     Dates: start: 20070101, end: 20120101
  8. CHANTIX [Suspect]
     Indication: SMOKING CESSATION THERAPY
     Dosage: UNK
     Dates: start: 20090201
  9. SYNTHROID [Concomitant]
     Indication: HYPOTHYROIDISM
     Dosage: UNK
     Dates: start: 20080101

REACTIONS (6)
  - INTENTIONAL OVERDOSE [None]
  - SUICIDE ATTEMPT [None]
  - ABNORMAL DREAMS [None]
  - DEPRESSION [None]
  - ANXIETY [None]
  - HALLUCINATION [None]
